FAERS Safety Report 22991429 (Version 2)
Quarter: 2023Q4

REPORT INFORMATION
  Report Type: Report from Study
  Country: US (occurrence: US)
  Receive Date: 20230927
  Receipt Date: 20231026
  Transmission Date: 20240109
  Serious: Yes (Other)
  Sender: FDA-Public Use
  Company Number: US-ABBVIE-5277247

PATIENT
  Sex: Male

DRUGS (2)
  1. HUMIRA [Suspect]
     Active Substance: ADALIMUMAB
     Indication: Hidradenitis
     Dosage: CITRATE FREE?FORM STRENGTH : 40 MILLIGRAM
     Route: 058
     Dates: start: 20221220
  2. HUMIRA [Suspect]
     Active Substance: ADALIMUMAB
     Dosage: CITRATE FREE
     Route: 058

REACTIONS (4)
  - Neoplasm recurrence [Recovered/Resolved]
  - Abdominal neoplasm [Not Recovered/Not Resolved]
  - Hidradenitis [Recovered/Resolved]
  - Influenza [Recovering/Resolving]

NARRATIVE: CASE EVENT DATE: 20230101
